FAERS Safety Report 18824891 (Version 1)
Quarter: 2021Q1

REPORT INFORMATION
  Report Type: Spontaneous
  Country: US (occurrence: US)
  Receive Date: 20210202
  Receipt Date: 20210202
  Transmission Date: 20210419
  Serious: No
  Sender: FDA-Public Use
  Company Number: US-PFIZER INC-2021081761

PATIENT
  Age: 85 Year
  Sex: Female

DRUGS (3)
  1. LATANOPROST. [Suspect]
     Active Substance: LATANOPROST
     Indication: GLAUCOMA
     Dosage: UNK
     Dates: start: 2020
  2. COMBIGAN [Suspect]
     Active Substance: BRIMONIDINE TARTRATE\TIMOLOL MALEATE
     Indication: GLAUCOMA
     Dosage: SOLUTION,0.2%
     Route: 047
  3. SYSTANE (HYPROMELLOSE 2910 (4000 MPA.S)) [Concomitant]
     Active Substance: HYPROMELLOSE 2910 (4000 MPA.S)
     Dosage: UNK

REACTIONS (3)
  - Ocular hyperaemia [Recovering/Resolving]
  - Scleral hyperaemia [Not Recovered/Not Resolved]
  - Scleral pigmentation [Not Recovered/Not Resolved]
